FAERS Safety Report 13294677 (Version 1)
Quarter: 2017Q1

REPORT INFORMATION
  Report Type: Spontaneous
  Country: US (occurrence: US)
  Receive Date: 20170303
  Receipt Date: 20170303
  Transmission Date: 20170428
  Serious: Yes (Other)
  Sender: FDA-Public Use
  Company Number: PHHY2017US029060

PATIENT
  Sex: Male

DRUGS (8)
  1. CYCLOPHOSPHAMIDE. [Suspect]
     Active Substance: CYCLOPHOSPHAMIDE
     Indication: NEUROBLASTOMA
     Route: 065
  2. TEMOZOLOMIDE. [Concomitant]
     Active Substance: TEMOZOLOMIDE
     Indication: NEUROBLASTOMA
     Route: 065
  3. BUTHIONINE SULFOXIMINE [Concomitant]
     Indication: NEUROBLASTOMA
     Route: 065
  4. IRINOTECAN [Concomitant]
     Active Substance: IRINOTECAN
     Indication: NEUROBLASTOMA
     Route: 065
  5. VORINOSTAT [Concomitant]
     Active Substance: VORINOSTAT
     Indication: NEUROBLASTOMA
     Route: 065
  6. MELPHALAN [Concomitant]
     Active Substance: MELPHALAN
     Indication: NEUROBLASTOMA
     Route: 065
  7. TOPOTECAN [Suspect]
     Active Substance: TOPOTECAN HYDROCHLORIDE
     Indication: NEUROBLASTOMA
     Route: 065
  8. META-IOD-BENZYLGUANIDIN [Concomitant]
     Indication: NEUROBLASTOMA
     Route: 065

REACTIONS (2)
  - Product use issue [Unknown]
  - Thymus enlargement [Recovered/Resolved]
